FAERS Safety Report 25397274 (Version 1)
Quarter: 2025Q2

REPORT INFORMATION
  Report Type: Spontaneous
  Country: CN (occurrence: CN)
  Receive Date: 20250604
  Receipt Date: 20250604
  Transmission Date: 20250717
  Serious: Yes (Hospitalization, Other)
  Sender: MERCK SHARP & DOHME LLC
  Company Number: CN-009507513-2290741

PATIENT
  Age: 41 Year
  Sex: Male
  Weight: 82 kg

DRUGS (2)
  1. CILASTATIN SODIUM\IMIPENEM [Suspect]
     Active Substance: CILASTATIN SODIUM\IMIPENEM
     Indication: Pancreatitis acute
     Dosage: DOSE FORM: LYOPHILIZED POWDER
     Route: 041
     Dates: start: 20250509, end: 20250509
  2. SODIUM CHLORIDE [Concomitant]
     Active Substance: SODIUM CHLORIDE
     Indication: Medication dilution
     Dosage: STRENGTH: 0.9%
     Route: 041
     Dates: start: 20250509, end: 20250509

REACTIONS (5)
  - Encephalopathy [Unknown]
  - Brain oedema [Unknown]
  - Hyperhidrosis [Unknown]
  - Product use in unapproved indication [Unknown]
  - Multi-organ disorder [Unknown]

NARRATIVE: CASE EVENT DATE: 20250501
